FAERS Safety Report 8615816-5 (Version None)
Quarter: 2012Q3

REPORT INFORMATION
  Report Type: 
  Country: None (occurrence: None)
  Receive Date: 20120823
  Receipt Date: 20120814
  Transmission Date: 20120928
  Serious: Yes (Hospitalization)
  Sender: FDA-Public Use
  Company Number: GXBR2012US001650

PATIENT
  Sex: Female
  Weight: 72.562 kg

DRUGS (1)
  1. AMOXICILLIN AND CLAVULANATE POTASSIUM [Suspect]
     Indication: EAR INFECTION
     Dosage: AMOXICILLIN 875 MG AND CLAVULANATE 125MG, ONCE DAILY X 10 DAYS
     Route: 048
     Dates: start: 20120626, end: 20120705

REACTIONS (6)
  - COLITIS [None]
  - HAEMATOCHEZIA [None]
  - ABDOMINAL PAIN UPPER [None]
  - GASTRITIS [None]
  - DIARRHOEA [None]
  - NAUSEA [None]
